FAERS Safety Report 9982609 (Version 1)
Quarter: 2014Q1

REPORT INFORMATION
  Report Type: Report from Study
  Country: US (occurrence: US)
  Receive Date: 20140307
  Receipt Date: 20140307
  Transmission Date: 20141002
  Serious: No
  Sender: FDA-Public Use
  Company Number: US-ABBVIE-13P-163-1175952-00

PATIENT
  Sex: Female

DRUGS (4)
  1. HUMIRA [Suspect]
     Indication: PRODUCT USED FOR UNKNOWN INDICATION
     Route: 058
     Dates: start: 2007, end: 2012
  2. PREDNISONE [Suspect]
     Indication: PRODUCT USED FOR UNKNOWN INDICATION
  3. METHOTREXATE [Concomitant]
     Indication: PRODUCT USED FOR UNKNOWN INDICATION
  4. PAIN MEDICATION [Concomitant]
     Indication: PRODUCT USED FOR UNKNOWN INDICATION

REACTIONS (12)
  - Lymphadenopathy [Unknown]
  - Chills [Unknown]
  - Fatigue [Unknown]
  - Impaired driving ability [Unknown]
  - Weight increased [Unknown]
  - Feeling hot [Unknown]
  - Pain [Unknown]
  - Gastrointestinal disorder [Unknown]
  - Activities of daily living impaired [Unknown]
  - Musculoskeletal pain [Unknown]
  - Alopecia [Unknown]
  - Pyrexia [Unknown]
